FAERS Safety Report 11969211 (Version 1)
Quarter: 2016Q1

REPORT INFORMATION
  Report Type: Spontaneous
  Country: US (occurrence: US)
  Receive Date: 20160128
  Receipt Date: 20160128
  Transmission Date: 20160526
  Serious: No
  Sender: FDA-Public Use
  Company Number: PHEH2015US005736

PATIENT
  Sex: Male

DRUGS (1)
  1. TASIGNA [Suspect]
     Active Substance: NILOTINIB
     Indication: LEUKAEMIA
     Dosage: 300 MG, BID
     Route: 048
     Dates: start: 20150220

REACTIONS (4)
  - Secretion discharge [Unknown]
  - Cough [Unknown]
  - Respiratory tract congestion [Unknown]
  - Sputum increased [Unknown]
